FAERS Safety Report 4636190-5 (Version None)
Quarter: 2005Q2

REPORT INFORMATION
  Report Type: 
  Country: None (occurrence: None)
  Receive Date: 20050413
  Receipt Date: 20050413
  Transmission Date: 20051028
  Serious: Yes (Life-Threatening, Hospitalization)
  Sender: FDA-Public Use
  Company Number: None

PATIENT
  Age: 41 Year
  Sex: Male
  Weight: 101.1521 kg

DRUGS (9)
  1. GEMFIBROZIL [Suspect]
     Indication: RHABDOMYOLYSIS
     Dosage: 600 MG PO BID
     Route: 048
     Dates: start: 20051202, end: 20050215
  2. HALOPERIDOL [Suspect]
     Indication: NEUROLEPTIC MALIGNANT SYNDROME
     Dosage: 10 MG PO BID
     Route: 048
     Dates: start: 20001220, end: 20050215
  3. OLANZAPINE [Concomitant]
  4. BENZTROPINE MESYLATE [Concomitant]
  5. MODAFINIL [Concomitant]
  6. ATENOLOL [Concomitant]
  7. ENALAPRIL [Concomitant]
  8. HYDROCHLOROTHIAZIDE [Concomitant]
  9. AMLODIPINE [Concomitant]

REACTIONS (4)
  - BLOOD CREATINE PHOSPHOKINASE INCREASED [None]
  - DIZZINESS [None]
  - HYPOTENSION [None]
  - RENAL FAILURE ACUTE [None]
